FAERS Safety Report 15075767 (Version 1)
Quarter: 2018Q2

REPORT INFORMATION
  Report Type: Spontaneous
  Country: US (occurrence: US)
  Receive Date: 20180627
  Receipt Date: 20180627
  Transmission Date: 20180711
  Serious: Yes (Other)
  Sender: FDA-Public Use
  Company Number: US-SA-2018SA170965

PATIENT
  Age: 56 Year
  Sex: Female
  Weight: 65 kg

DRUGS (6)
  1. MYLERAN [Concomitant]
     Active Substance: BUSULFAN
  2. HERCEPTIN [Concomitant]
     Active Substance: TRASTUZUMAB
  3. TAXOTERE [Suspect]
     Active Substance: DOCETAXEL
     Indication: NON-SMALL CELL LUNG CANCER
     Dosage: 127 MG, QW
     Dates: start: 20101108, end: 20101108
  4. CARBOPLATIN. [Concomitant]
     Active Substance: CARBOPLATIN
  5. TAXOTERE [Suspect]
     Active Substance: DOCETAXEL
     Indication: BREAST CANCER
     Dosage: 127 MG, QW
     Route: 042
     Dates: start: 20100709, end: 20100709
  6. PARAPLATIN [Concomitant]
     Active Substance: CARBOPLATIN

REACTIONS (2)
  - Psychological trauma [Unknown]
  - Alopecia [Recovering/Resolving]

NARRATIVE: CASE EVENT DATE: 201008
